FAERS Safety Report 21518926 (Version 14)
Quarter: 2024Q3

REPORT INFORMATION
  Report Type: Report from Study
  Country: US (occurrence: US)
  Receive Date: 20221028
  Receipt Date: 20240823
  Transmission Date: 20241017
  Serious: Yes (Other)
  Sender: ABBVIE
  Company Number: US-ABBVIE-4176980

PATIENT
  Sex: Male

DRUGS (8)
  1. HUMIRA [Suspect]
     Active Substance: ADALIMUMAB
     Indication: Rheumatoid arthritis
     Dosage: FORM STRENGTH: 40 MILLIGRAM, CITRATE FREE
     Route: 058
     Dates: start: 20200603
  2. HUMIRA [Suspect]
     Active Substance: ADALIMUMAB
     Dosage: FORM STRENGTH: 40 MILLIGRAM, CITRATE FREE
     Route: 058
  3. HUMIRA [Suspect]
     Active Substance: ADALIMUMAB
     Dosage: FORM STRENGTH: 40 MILLIGRAM, CITRATE FREE, LAST ADMIN DATE: 2020
     Route: 058
     Dates: start: 20200306
  4. HUMIRA [Suspect]
     Active Substance: ADALIMUMAB
     Dosage: FORM STRENGTH: 40 MILLIGRAM, CITRATE FREE
     Route: 058
  5. HUMIRA [Suspect]
     Active Substance: ADALIMUMAB
     Dosage: FORM STRENGTH: 40 MILLIGRAM, CITRATE FREE
     Route: 058
  6. HUMIRA [Suspect]
     Active Substance: ADALIMUMAB
     Dosage: FORM STRENGTH: 40 MILLIGRAM, CITRATE FREE
     Route: 058
  7. GABAPENTIN [Suspect]
     Active Substance: GABAPENTIN
     Indication: Product used for unknown indication
     Dosage: 3 CAPSULE
     Route: 048
     Dates: start: 2023
  8. GABAPENTIN [Suspect]
     Active Substance: GABAPENTIN
     Indication: Product used for unknown indication
     Dosage: 6 CAPSULE
     Route: 048

REACTIONS (17)
  - Spinal fusion surgery [Recovering/Resolving]
  - Insomnia [Unknown]
  - Neuropathy peripheral [Unknown]
  - Pelvic pain [Unknown]
  - Back pain [Unknown]
  - Pain in extremity [Unknown]
  - Neuralgia [Not Recovered/Not Resolved]
  - Nerve compression [Unknown]
  - Intervertebral disc degeneration [Unknown]
  - Contusion [Unknown]
  - Scoliosis [Unknown]
  - Musculoskeletal discomfort [Unknown]
  - Weight increased [Recovering/Resolving]
  - Neck pain [Unknown]
  - Vision blurred [Recovered/Resolved]
  - Brain fog [Recovered/Resolved]
  - Rheumatoid arthritis [Unknown]

NARRATIVE: CASE EVENT DATE: 20230101
